FAERS Safety Report 23610204 (Version 1)
Quarter: 2024Q1

REPORT INFORMATION
  Report Type: Spontaneous
  Country: FR (occurrence: FR)
  Receive Date: 20240308
  Receipt Date: 20240308
  Transmission Date: 20240409
  Serious: Yes (Death)
  Sender: FDA-Public Use
  Company Number: FR-SUN PHARMACEUTICAL INDUSTRIES LTD-2024RR-435503

PATIENT
  Age: 55 Year
  Sex: Female
  Weight: 44 kg

DRUGS (6)
  1. QUETIAPINE [Suspect]
     Active Substance: QUETIAPINE
     Indication: Depression
     Dosage: 50 MILLIGRAM, DAILY
     Route: 048
     Dates: start: 20221109, end: 20231012
  2. PAROXETINE [Suspect]
     Active Substance: PAROXETINE
     Indication: Anxiety
     Dosage: 20 MILLIGRAM, DAILY
     Route: 048
     Dates: start: 20221109, end: 20231012
  3. CYAMEMAZINE [Suspect]
     Active Substance: CYAMEMAZINE
     Indication: Anxiety
     Dosage: 75 MILLIGRAM, DAILY
     Route: 048
     Dates: start: 20221109, end: 20231012
  4. OXAZEPAM [Suspect]
     Active Substance: OXAZEPAM
     Indication: Anxiety
     Dosage: 100 MILLIGRAM, DAILY
     Route: 048
     Dates: start: 20221109, end: 20231012
  5. BUPRENORPHINE [Suspect]
     Active Substance: BUPRENORPHINE
     Indication: Drug dependence
     Dosage: 8 MILLIGRAM, WEEKLY
     Route: 058
     Dates: start: 20230712, end: 20231012
  6. MIRTAZAPINE [Suspect]
     Active Substance: MIRTAZAPINE
     Indication: Anxiety
     Dosage: 15 MILLIGRAM, DAILY
     Route: 048
     Dates: start: 20221109, end: 20231012

REACTIONS (3)
  - Condition aggravated [Fatal]
  - Sudden death [Fatal]
  - Dyspnoea [Fatal]

NARRATIVE: CASE EVENT DATE: 20231011
